FAERS Safety Report 25038180 (Version 2)
Quarter: 2025Q1

REPORT INFORMATION
  Report Type: Spontaneous
  Country: CZ (occurrence: CZ)
  Receive Date: 20250304
  Receipt Date: 20250327
  Transmission Date: 20250409
  Serious: Yes (Other)
  Sender: NOVARTIS
  Company Number: CZ-002147023-NVSC2025CZ035353

PATIENT
  Age: 41 Year
  Sex: Female

DRUGS (4)
  1. KISQALI [Suspect]
     Active Substance: RIBOCICLIB
     Indication: Breast cancer metastatic
     Route: 065
     Dates: start: 2019
  2. KISQALI [Suspect]
     Active Substance: RIBOCICLIB
     Dosage: 400 MG, QD(DAILY (FOR 3 WEEKS,1 WEEK BREAK))
     Route: 065
     Dates: start: 202007, end: 202010
  3. KISQALI [Suspect]
     Active Substance: RIBOCICLIB
     Dosage: 400 MG, QD(DAILY (FOR 3  WEEKS, 1 WEEK BREAK))
     Route: 065
     Dates: start: 2020
  4. GONADORELIN [Concomitant]
     Active Substance: GONADORELIN
     Indication: Breast cancer
     Route: 065

REACTIONS (3)
  - COVID-19 pneumonia [Recovered/Resolved]
  - Diarrhoea [Recovered/Resolved]
  - Therapeutic response decreased [Recovering/Resolving]

NARRATIVE: CASE EVENT DATE: 20200701
